FAERS Safety Report 8983811 (Version 1)
Quarter: 2012Q4

REPORT INFORMATION
  Report Type: 
  Country: US (occurrence: US)
  Receive Date: 20121224
  Receipt Date: 20121224
  Transmission Date: 20130627
  Serious: Yes (Hospitalization)
  Sender: FDA-Public Use
  Company Number: US-ACTELION-A-US2012-76578

PATIENT
  Age: 49 Year
  Sex: Female

DRUGS (1)
  1. VELETRI [Suspect]
     Indication: PULMONARY ARTERIAL HYPERTENSION
     Dosage: 8 ng/kg, per min
     Route: 042
     Dates: start: 20121129

REACTIONS (4)
  - Weight increased [Unknown]
  - Dyspnoea [Unknown]
  - Catheter site erythema [Unknown]
  - Catheter site discharge [Unknown]
